FAERS Safety Report 26020693 (Version 1)
Quarter: 2025Q4

REPORT INFORMATION
  Report Type: Spontaneous
  Country: CA (occurrence: CA)
  Receive Date: 20251110
  Receipt Date: 20251110
  Transmission Date: 20260118
  Serious: Yes (Hospitalization)
  Sender: TEVA
  Company Number: CA-TEVA-VS-3390274

PATIENT
  Age: 4 Month
  Sex: Male

DRUGS (3)
  1. PROPRANOLOL [Suspect]
     Active Substance: PROPRANOLOL HYDROCHLORIDE
     Indication: Cardiofaciocutaneous syndrome
     Route: 065
  2. TRAMETINIB [Suspect]
     Active Substance: TRAMETINIB
     Indication: Cardiofaciocutaneous syndrome
     Route: 048
  3. SPIRONOLACTONE [Suspect]
     Active Substance: SPIRONOLACTONE
     Indication: Hypertrophic cardiomyopathy
     Route: 065

REACTIONS (4)
  - Drug ineffective [Unknown]
  - Eczema [Unknown]
  - Off label use [Unknown]
  - Oedema [Unknown]
